FAERS Safety Report 20232634 (Version 1)
Quarter: 2021Q4

REPORT INFORMATION
  Report Type: Spontaneous
  Country: US (occurrence: None)
  Receive Date: 20211223
  Receipt Date: 20211223
  Transmission Date: 20220303
  Serious: No
  Sender: FDA-Public Use
  Company Number: None

PATIENT
  Age: 44 Year
  Sex: Male

DRUGS (2)
  1. COSENTYX [Suspect]
     Active Substance: SECUKINUMAB
     Indication: Ankylosing spondylitis
     Dosage: OTHER FREQUENCY : @DAY28,THNEVRY4WKS;?
     Route: 058
     Dates: start: 202107
  2. COSENTYX [Suspect]
     Active Substance: SECUKINUMAB
     Indication: Intervertebral disc disorder

REACTIONS (1)
  - Gastric disorder [None]
